FAERS Safety Report 9508958 (Version 1)
Quarter: 2013Q3

REPORT INFORMATION
  Report Type: Spontaneous
  Country: US (occurrence: US)
  Receive Date: 20130909
  Receipt Date: 20130909
  Transmission Date: 20140515
  Serious: No
  Sender: FDA-Public Use
  Company Number: US-BRISTOL-MYERS SQUIBB COMPANY-19068519

PATIENT
  Age: 37 Year
  Sex: Male
  Weight: 86.17 kg

DRUGS (3)
  1. ABILIFY [Suspect]
  2. LEVOTHYROXINE [Concomitant]
  3. TRAZODONE HCL [Concomitant]

REACTIONS (3)
  - Insomnia [Unknown]
  - Anxiety [Unknown]
  - Discomfort [Unknown]
